FAERS Safety Report 8406076-9 (Version None)
Quarter: 2012Q2

REPORT INFORMATION
  Report Type: 
  Country: None (occurrence: None)
  Receive Date: 20120323
  Receipt Date: 20110218
  Transmission Date: 20120825
  Serious: Yes (Hospitalization)
  Sender: FDA-Public Use
  Company Number: 163-21880-11011847

PATIENT
  Age: 64 Year
  Sex: Male

DRUGS (8)
  1. DEXAMETHASONE [Concomitant]
  2. VELCADE [Concomitant]
  3. CELEXA (CITALOPRAM HYDROBROMIDE)(UNKNOWN) [Concomitant]
  4. REVLIMID [Suspect]
     Indication: MULTIPLE MYELOMA
     Dosage: 25 MG, 1 IN 1 D, PO, 15 MG, QD X21 DAYS, PO
     Route: 048
     Dates: start: 20080910
  5. REVLIMID [Suspect]
     Indication: MULTIPLE MYELOMA
     Dosage: 25 MG, 1 IN 1 D, PO, 15 MG, QD X21 DAYS, PO
     Route: 048
     Dates: start: 20090101
  6. LOTREL(LOTREL)(TABLETS) [Concomitant]
  7. FENOFIBRATE [Concomitant]
  8. COUMADIN [Concomitant]

REACTIONS (1)
  - DEEP VEIN THROMBOSIS [None]
